FAERS Safety Report 6007203-3 (Version None)
Quarter: 2008Q4

REPORT INFORMATION
  Report Type: 
  Country: None (occurrence: None)
  Receive Date: 20081217
  Receipt Date: 20080218
  Transmission Date: 20090506
  Serious: No
  Sender: FDA-Public Use
  Company Number: US-ASTRAZENECA-2008UW03317

PATIENT
  Sex: Female

DRUGS (2)
  1. CRESTOR [Suspect]
     Route: 048
  2. THYROID MEDICATION [Suspect]
     Indication: THYROID DISORDER

REACTIONS (2)
  - DRUG INTERACTION [None]
  - WEIGHT INCREASED [None]
